FAERS Safety Report 9917425 (Version 1)
Quarter: 2014Q1

REPORT INFORMATION
  Report Type: Spontaneous
  Country: US (occurrence: US)
  Receive Date: 20140221
  Receipt Date: 20140221
  Transmission Date: 20141002
  Serious: No
  Sender: FDA-Public Use
  Company Number: US-PFIZER INC-2014050676

PATIENT
  Age: 58 Year
  Sex: Female
  Weight: 54.4 kg

DRUGS (3)
  1. LYRICA [Suspect]
     Indication: PAIN
     Dosage: 200 MG, 2X/DAY
     Dates: start: 201311, end: 201401
  2. LYRICA [Suspect]
     Indication: SPINAL CORD INJURY
  3. SYNTHROID [Concomitant]
     Indication: HYPOTHYROIDISM
     Dosage: 200 UG, 1X/DAY

REACTIONS (1)
  - Pain [Unknown]
